FAERS Safety Report 13225857 (Version 1)
Quarter: 2017Q1

REPORT INFORMATION
  Report Type: Spontaneous
  Country: US (occurrence: US)
  Receive Date: 20170210
  Receipt Date: 20170210
  Transmission Date: 20170428
  Serious: No
  Sender: FDA-Public Use
  Company Number: None

PATIENT
  Age: 26 Year
  Sex: Female
  Weight: 62.65 kg

DRUGS (1)
  1. OXYTOCIN. [Suspect]
     Active Substance: OXYTOCIN

REACTIONS (3)
  - Incorrect dose administered by device [None]
  - Exposure during pregnancy [None]
  - Uterine spasm [None]

NARRATIVE: CASE EVENT DATE: 20170126
